FAERS Safety Report 9163962 (Version 4)
Quarter: 2013Q2

REPORT INFORMATION
  Report Type: Spontaneous
  Country: US (occurrence: US)
  Receive Date: 20130314
  Receipt Date: 20130510
  Transmission Date: 20140414
  Serious: Yes (Death, Hospitalization)
  Sender: FDA-Public Use
  Company Number: US-B.I. PHARMACEUTICALS,INC./RIDGEFIELD-2013-BI-06646BP

PATIENT
  Age: 76 Year
  Sex: Male
  Weight: 189.6 kg

DRUGS (9)
  1. PRADAXA [Suspect]
     Indication: ATRIAL FIBRILLATION
     Dosage: 300 MG
     Route: 048
     Dates: start: 20110914, end: 20120828
  2. RANEXA [Concomitant]
     Dosage: 1000 MG
  3. DEMADEX [Concomitant]
  4. KCL [Concomitant]
     Dosage: 80 MEQ
  5. METOLAZONE [Concomitant]
     Dosage: 0.3571 MG
  6. TAMSULOSIN [Concomitant]
  7. METOPROLOL [Concomitant]
  8. ALLOPURINOL [Concomitant]
  9. LORTAB [Concomitant]

REACTIONS (4)
  - Gastrointestinal haemorrhage [Fatal]
  - Acute myocardial infarction [Unknown]
  - Anaemia [Unknown]
  - Cardiogenic shock [Unknown]
